FAERS Safety Report 9558402 (Version 1)
Quarter: 2013Q3

REPORT INFORMATION
  Report Type: Spontaneous
  Country: US (occurrence: US)
  Receive Date: 20130926
  Receipt Date: 20130926
  Transmission Date: 20140515
  Serious: No
  Sender: FDA-Public Use
  Company Number: US-ASTRAZENECA-2013SE68809

PATIENT
  Age: 78 Year
  Sex: Female
  Weight: 63.5 kg

DRUGS (7)
  1. LISINOPRIL [Suspect]
     Indication: HYPERTENSION
     Route: 048
  2. LISINOPRIL [Suspect]
     Indication: HYPERTENSION
     Route: 048
  3. CRESTOR [Suspect]
     Indication: BLOOD CHOLESTEROL INCREASED
     Dosage: UNKNOWN
     Route: 048
     Dates: start: 2013
  4. BABY ASPIRIN [Concomitant]
     Dosage: 2 TABLETS
     Route: 048
  5. BYSTOLIC [Concomitant]
     Indication: HYPERTENSION
     Route: 048
  6. LEVOXYL [Concomitant]
     Indication: BASEDOW^S DISEASE
     Dosage: 126 MCG DAILY
     Route: 048
     Dates: end: 2013
  7. LEVOXYL [Concomitant]
     Indication: BASEDOW^S DISEASE
     Dosage: 88 MCG DAILY
     Route: 048
     Dates: start: 2013

REACTIONS (6)
  - Lacrimation increased [Recovered/Resolved]
  - Osteoporosis [Unknown]
  - Blood pressure fluctuation [Unknown]
  - Alopecia [Unknown]
  - Dizziness [Unknown]
  - Amnesia [Not Recovered/Not Resolved]
